FAERS Safety Report 4965899-9 (Version None)
Quarter: 2006Q2

REPORT INFORMATION
  Report Type: 
  Country: None (occurrence: None)
  Receive Date: 20060407
  Receipt Date: 20060323
  Transmission Date: 20061013
  Serious: Yes (Other)
  Sender: FDA-Public Use
  Company Number: PHNR2006AU00607

PATIENT
  Age: 66 Year
  Sex: Male

DRUGS (1)
  1. ZOMETA [Suspect]
     Indication: PROSTATE CANCER

REACTIONS (4)
  - ABSCESS JAW [None]
  - HYPERBARIC OXYGEN THERAPY [None]
  - INFECTION [None]
  - TOOTH EXTRACTION [None]
